FAERS Safety Report 24186670 (Version 1)
Quarter: 2024Q3

REPORT INFORMATION
  Report Type: Report from Study
  Country: US (occurrence: None)
  Receive Date: 20240808
  Receipt Date: 20240808
  Transmission Date: 20241017
  Serious: Yes (Other)
  Sender: ASTRAZENECA
  Company Number: 2021A788185

PATIENT
  Sex: Female

DRUGS (2)
  1. CALQUENCE [Suspect]
     Active Substance: ACALABRUTINIB
     Indication: Chronic lymphocytic leukaemia
     Route: 048
     Dates: start: 20210529
  2. BUMEX [Concomitant]
     Active Substance: BUMETANIDE
     Route: 065

REACTIONS (3)
  - Cardiac failure congestive [Unknown]
  - Blood potassium decreased [Unknown]
  - Blood magnesium abnormal [Unknown]
